FAERS Safety Report 8646285 (Version 10)
Quarter: 2012Q4

REPORT INFORMATION
  Report Type: 
  Country: US (occurrence: US)
  Receive Date: 20120702
  Receipt Date: 20120927
  Transmission Date: 20130627
  Serious: Yes (Death)
  Sender: FDA-Public Use
  Company Number: US-JNJFOC-20120614761

PATIENT
  Age: 75 None
  Sex: Male

DRUGS (9)
  1. PRADAXA [Suspect]
     Indication: ATRIAL FIBRILLATION
     Route: 048
     Dates: end: 201205
  2. RAMIPRIL [Concomitant]
     Route: 048
  3. AMLODIPINE [Concomitant]
     Route: 048
  4. CRESTOR [Concomitant]
     Route: 048
  5. ATENOLOL [Concomitant]
     Route: 048
  6. FAMOTIDINE [Concomitant]
     Route: 048
  7. CALCIUM AND VITAMIN D3 [Concomitant]
  8. XARELTO [Suspect]
     Indication: CEREBROVASCULAR ACCIDENT PROPHYLAXIS
     Route: 048
  9. XARELTO [Suspect]
     Indication: ATRIAL FIBRILLATION
     Route: 048

REACTIONS (1)
  - Cerebral haemorrhage [Fatal]
